FAERS Safety Report 8861360 (Version 1)
Quarter: 2012Q4

REPORT INFORMATION
  Report Type: 
  Country: US (occurrence: US)
  Receive Date: 20121026
  Receipt Date: 20121026
  Transmission Date: 20130627
  Serious: Yes (Other)
  Sender: FDA-Public Use
  Company Number: US-009507513-1210USA011227

PATIENT
  Age: 71 Year
  Sex: Female

DRUGS (2)
  1. FOSAMAX [Suspect]
     Dosage: UNK
     Route: 048
     Dates: end: 2009
  2. FOSAMAX PLUS D [Suspect]
     Route: 048

REACTIONS (2)
  - Humerus fracture [Unknown]
  - Fall [Unknown]
